FAERS Safety Report 4954535-3 (Version None)
Quarter: 2006Q1

REPORT INFORMATION
  Report Type: 
  Country: None (occurrence: None)
  Receive Date: 20060322
  Receipt Date: 20060306
  Transmission Date: 20060701
  Serious: Yes (Hospitalization)
  Sender: FDA-Public Use
  Company Number: 223024

PATIENT
  Age: 59 Year
  Sex: Female

DRUGS (3)
  1. AVASTIN [Suspect]
     Indication: COLORECTAL CANCER
     Dosage: 587.5 MG, Q3W, INTRAVENOUS
     Route: 042
     Dates: start: 20051228
  2. CAPECITABINE (CAPECITABINE) [Suspect]
     Indication: COLORECTAL CANCER
     Dosage: 2000 MG, ORAL
     Route: 048
     Dates: start: 20051228
  3. OXALIPLATIN (OXALIPLATIN) [Suspect]
     Indication: COLORECTAL CANCER
     Dosage: 247.5 MG, Q3W, INTRAVENOUS
     Route: 042
     Dates: start: 20051228

REACTIONS (1)
  - PYREXIA [None]
